FAERS Safety Report 9076933 (Version 1)
Quarter: 2013Q1

REPORT INFORMATION
  Report Type: Report from Study
  Country: US (occurrence: US)
  Receive Date: 20130129
  Receipt Date: 20130129
  Transmission Date: 20140127
  Serious: No
  Sender: FDA-Public Use
  Company Number: US-ABBOTT-12P-163-0942194-00

PATIENT
  Sex: Female
  Weight: 39.5 kg

DRUGS (8)
  1. HUMIRA 40 MG/0.8 ML PEN [Suspect]
     Indication: RHEUMATOID ARTHRITIS
     Dates: start: 201201
  2. FOLIC ACID [Concomitant]
     Indication: RHEUMATOID ARTHRITIS
  3. FOSAMAX [Concomitant]
     Indication: OSTEOPOROSIS
  4. HYDROXYZINE [Concomitant]
     Indication: HYPERSENSITIVITY
  5. LISINOPRIL [Concomitant]
     Indication: HYPERTENSION
  6. NEURONTIN [Concomitant]
     Indication: PAIN
  7. NORVASC [Concomitant]
     Indication: HYPERTENSION
  8. PREDNISONE [Concomitant]
     Indication: RHEUMATOID ARTHRITIS

REACTIONS (4)
  - Fatigue [Not Recovered/Not Resolved]
  - Dysphonia [Recovering/Resolving]
  - Influenza [Recovering/Resolving]
  - Nausea [Not Recovered/Not Resolved]
